FAERS Safety Report 23672161 (Version 1)
Quarter: 2024Q1

REPORT INFORMATION
  Report Type: Spontaneous
  Country: US (occurrence: US)
  Receive Date: 20240326
  Receipt Date: 20240326
  Transmission Date: 20240409
  Serious: Yes (Hospitalization)
  Sender: FDA-Public Use
  Company Number: US-NOVITIUMPHARMA-2024USNVP00311

PATIENT
  Age: 39 Year
  Sex: Female

DRUGS (4)
  1. PYRAZINAMIDE [Suspect]
     Active Substance: PYRAZINAMIDE
     Indication: Pulmonary tuberculosis
  2. RIFAMYCIN [Concomitant]
     Active Substance: RIFAMYCIN
     Indication: Pulmonary tuberculosis
  3. ISONIAZID [Concomitant]
     Active Substance: ISONIAZID
     Indication: Pulmonary tuberculosis
  4. ETHAMBUTOL [Concomitant]
     Active Substance: ETHAMBUTOL HYDROCHLORIDE
     Indication: Pulmonary tuberculosis

REACTIONS (1)
  - Drug ineffective [Unknown]
